FAERS Safety Report 5904413-8 (Version None)
Quarter: 2008Q3

REPORT INFORMATION
  Report Type: 
  Country: None (occurrence: None)
  Receive Date: 20080930
  Receipt Date: 20080930
  Transmission Date: 20090109
  Serious: Yes (Other)
  Sender: FDA-Public Use
  Company Number: None

PATIENT
  Sex: Male
  Weight: 73.4827 kg

DRUGS (1)
  1. EFFEXOR XR [Suspect]
     Indication: DEPRESSION
     Dosage: 75MG 1/DAY PO
     Route: 048
     Dates: start: 20080610, end: 20080819

REACTIONS (10)
  - ABDOMINAL PAIN [None]
  - ANOREXIA [None]
  - DEAFNESS [None]
  - DRUG WITHDRAWAL SYNDROME [None]
  - HEADACHE [None]
  - MUSCLE TIGHTNESS [None]
  - NAUSEA [None]
  - NERVOUS SYSTEM DISORDER [None]
  - PHANTOM PAIN [None]
  - TINNITUS [None]
